FAERS Safety Report 5838615-6 (Version None)
Quarter: 2008Q3

REPORT INFORMATION
  Report Type: 
  Country: None (occurrence: None)
  Receive Date: 20080808
  Receipt Date: 20080523
  Transmission Date: 20090109
  Serious: No
  Sender: FDA-Public Use
  Company Number: A0730978A

PATIENT
  Sex: Male

DRUGS (1)
  1. RETAPAMULIN [Suspect]
     Route: 061

REACTIONS (3)
  - LOCAL SWELLING [None]
  - PAIN [None]
  - SWELLING [None]
